FAERS Safety Report 8981495 (Version 1)
Quarter: 2012Q4

REPORT INFORMATION
  Report Type: 
  Country: US (occurrence: US)
  Receive Date: 20121221
  Receipt Date: 20121221
  Transmission Date: 20130627
  Serious: Yes (Hospitalization)
  Sender: FDA-Public Use
  Company Number: US-JNJFOC-20121206557

PATIENT
  Age: 66 Year
  Sex: Female
  Weight: 45.9 kg

DRUGS (5)
  1. DOXORUBICIN HYDROCHLORIDE (CAELYX) [Suspect]
     Indication: OVARIAN CANCER METASTATIC
     Route: 042
     Dates: start: 20121001, end: 20121001
  2. KYTRIL [Concomitant]
     Route: 048
     Dates: start: 20121001, end: 20121001
  3. DEXAMETHASONE [Concomitant]
     Route: 048
     Dates: start: 20121001, end: 20121001
  4. CENTRUM SILVER [Concomitant]
     Indication: VITAMIN SUPPLEMENTATION
     Route: 065
     Dates: start: 2002
  5. ATIVAN [Concomitant]
     Indication: ANXIETY
     Route: 048
     Dates: start: 200702

REACTIONS (3)
  - Metastases to central nervous system [Recovering/Resolving]
  - Metastases to neck [Unknown]
  - Spinal osteoarthritis [Unknown]
